FAERS Safety Report 14038317 (Version 1)
Quarter: 2017Q4

REPORT INFORMATION
  Report Type: Spontaneous
  Country: US (occurrence: US)
  Receive Date: 20171004
  Receipt Date: 20171004
  Transmission Date: 20180321
  Serious: Yes (Other)
  Sender: FDA-Public Use
  Company Number: US-PFIZER INC-2017426093

PATIENT

DRUGS (1)
  1. PENICILLIN G PROCAINE. [Suspect]
     Active Substance: PENICILLIN G PROCAINE
     Indication: SYPHILIS
     Dosage: 2.4 MILLION IU, (2.4 MILLION UNITS, TWO INJECTIONS OF 1.2 MILLION UNITS)

REACTIONS (1)
  - Seizure like phenomena [Recovered/Resolved]
